FAERS Safety Report 8912730 (Version 3)
Quarter: 2012Q4

REPORT INFORMATION
  Report Type: 
  Country: US (occurrence: US)
  Receive Date: 20121116
  Receipt Date: 20121221
  Transmission Date: 20130627
  Serious: Yes (Other)
  Sender: FDA-Public Use
  Company Number: US-VERTEX PHARMACEUTICAL INC.-2012-024673

PATIENT
  Age: 65 None
  Sex: Female

DRUGS (7)
  1. VX-950 (TELAPREVIR) [Suspect]
     Indication: HEPATITIS C
     Dosage: 750 mg, tid
     Route: 048
     Dates: start: 20121103
  2. PEGASYS [Suspect]
     Indication: HEPATITIS C
     Dosage: 180 ?g, UNK
  3. RIBAVIRIN [Suspect]
     Indication: HEPATITIS C
     Dosage: 200 mg, UNK
  4. RIBAVIRIN [Suspect]
     Dosage: 400 mg in am, 200 mg in pm
  5. AMBIEN [Concomitant]
     Dosage: 10 mg, UNK
  6. SYNTHROID [Concomitant]
     Dosage: 137 ?g, UNK
  7. ZANTAC [Concomitant]
     Dosage: 75 mg, UNK

REACTIONS (12)
  - Haemoglobin decreased [Unknown]
  - Cystitis [Unknown]
  - Faecal incontinence [Unknown]
  - Asthma [Unknown]
  - Fatigue [Unknown]
  - Asthenia [Unknown]
  - Anorectal discomfort [Recovered/Resolved]
  - Anal pruritus [Recovered/Resolved]
  - Pruritus [Unknown]
  - Nausea [Unknown]
  - Vomiting [Unknown]
  - Diarrhoea [Unknown]
